FAERS Safety Report 9520417 (Version 1)
Quarter: 2013Q3

REPORT INFORMATION
  Report Type: Report from Study
  Country: FR (occurrence: FR)
  Receive Date: 20130912
  Receipt Date: 20130912
  Transmission Date: 20140515
  Serious: No
  Sender: FDA-Public Use
  Company Number: PHHY2013FR099933

PATIENT
  Sex: Female

DRUGS (3)
  1. STI571 [Suspect]
  2. TASIGNA [Suspect]
     Dosage: 800 MG/DAY
  3. SPRYCEL//DASATINIB [Suspect]
     Dosage: 100 MG/ DAY
     Dates: start: 20040108

REACTIONS (4)
  - Alpha 2 globulin increased [Unknown]
  - Inflammation [Unknown]
  - Breast inflammation [Unknown]
  - Pleural effusion [Unknown]
